FAERS Safety Report 10235580 (Version 1)
Quarter: 2014Q1

REPORT INFORMATION
  Report Type: Spontaneous
  Country: US (occurrence: None)
  Receive Date: 20140306
  Receipt Date: 20140306
  Transmission Date: 20141002
  Serious: Yes (Other)
  Sender: FDA-Public Use
  Company Number: 163-21880-13021269

PATIENT
  Age: 63 Year
  Sex: Female
  Weight: 60.78 kg

DRUGS (5)
  1. REVLIMID [Suspect]
     Indication: PLASMA CELL MYELOMA
     Dosage: 25 MG, 1 IN 1 D, PO
     Route: 048
     Dates: start: 201005
  2. ACYCLOVIR(ACICLOVIR)(CAPSULES) [Concomitant]
  3. DEXAMETHASONE(DEXAMETHASONE)(UKNOWN) [Concomitant]
  4. BACTRIM [Concomitant]
  5. BENZONATATE(BENZONATATE) [Concomitant]

REACTIONS (4)
  - Bronchitis [None]
  - Influenza [None]
  - Plasma cell myeloma [None]
  - Blood count abnormal [None]
